FAERS Safety Report 13284970 (Version 1)
Quarter: 2017Q1

REPORT INFORMATION
  Report Type: Spontaneous
  Country: US (occurrence: US)
  Receive Date: 20170301
  Receipt Date: 20170301
  Transmission Date: 20170428
  Serious: Yes (Hospitalization)
  Sender: FDA-Public Use
  Company Number: None

PATIENT
  Age: 49 Year
  Sex: Female
  Weight: 85.5 kg

DRUGS (6)
  1. TRAZODONE [Concomitant]
     Active Substance: TRAZODONE HYDROCHLORIDE
  2. PREDNISONE. [Concomitant]
     Active Substance: PREDNISONE
  3. PAXIL [Concomitant]
     Active Substance: PAROXETINE HYDROCHLORIDE
  4. TYLNEOL [Concomitant]
  5. HUMIRA [Suspect]
     Active Substance: ADALIMUMAB
     Indication: COLITIS ULCERATIVE
     Dosage: QUANTITY:1 INJECTION(S);OTHER FREQUENCY:BI-WEEKLY;?
     Route: 058
     Dates: start: 20161207, end: 20170208
  6. COLONZEPAM [Concomitant]

REACTIONS (11)
  - Pyrexia [None]
  - Fatigue [None]
  - Drug ineffective [None]
  - Rash [None]
  - Colitis ulcerative [None]
  - Chills [None]
  - Abdominal pain upper [None]
  - Dehydration [None]
  - Condition aggravated [None]
  - Defaecation urgency [None]
  - Hyperhidrosis [None]

NARRATIVE: CASE EVENT DATE: 20170213
